FAERS Safety Report 13655197 (Version 2)
Quarter: 2017Q2

REPORT INFORMATION
  Report Type: Report from Study
  Country: None (occurrence: US)
  Receive Date: 20170615
  Receipt Date: 20170620
  Transmission Date: 20170830
  Serious: Yes (Hospitalization, Other)
  Sender: FDA-Public Use
  Company Number: US-ABBVIE-17K-163-2003143-00

PATIENT
  Age: 51 Year
  Sex: Female
  Weight: 73.09 kg

DRUGS (7)
  1. VITAMIN B [Concomitant]
     Active Substance: VITAMIN B
     Indication: PRODUCT USED FOR UNKNOWN INDICATION
  2. AZATHIOPRINE. [Concomitant]
     Active Substance: AZATHIOPRINE
     Indication: PRODUCT USED FOR UNKNOWN INDICATION
  3. HUMIRA [Suspect]
     Active Substance: ADALIMUMAB
     Indication: CROHN^S DISEASE
     Route: 058
     Dates: start: 2010
  4. DULOXETINE. [Concomitant]
     Active Substance: DULOXETINE
     Indication: PRODUCT USED FOR UNKNOWN INDICATION
  5. LOSARTAN. [Concomitant]
     Active Substance: LOSARTAN
     Indication: PRODUCT USED FOR UNKNOWN INDICATION
  6. GABAPENTIN. [Concomitant]
     Active Substance: GABAPENTIN
     Indication: PRODUCT USED FOR UNKNOWN INDICATION
  7. LISINOPRIL. [Concomitant]
     Active Substance: LISINOPRIL
     Indication: PRODUCT USED FOR UNKNOWN INDICATION

REACTIONS (16)
  - Colectomy [Unknown]
  - Stoma site inflammation [Unknown]
  - Hepatitis B [Unknown]
  - Crohn^s disease [Unknown]
  - Treatment noncompliance [Not Recovered/Not Resolved]
  - Depression [Unknown]
  - Aphthous ulcer [Unknown]
  - Abdominal pain [Unknown]
  - Hypokalaemia [Unknown]
  - Bone density abnormal [Unknown]
  - Suicide attempt [Recovered/Resolved]
  - Sensation of foreign body [Unknown]
  - Carcinoid tumour of the appendix [Unknown]
  - Gastritis [Unknown]
  - Nausea [Unknown]
  - Vitamin D deficiency [Unknown]

NARRATIVE: CASE EVENT DATE: 2011
